FAERS Safety Report 8886541 (Version 2)
Quarter: 2013Q1

REPORT INFORMATION
  Report Type: Spontaneous
  Country: US (occurrence: US)
  Receive Date: 20121105
  Receipt Date: 20130313
  Transmission Date: 20140127
  Serious: Yes (Other)
  Sender: FDA-Public Use
  Company Number: PHEH2012US021461

PATIENT
  Sex: Female

DRUGS (3)
  1. EXFORGE [Suspect]
     Dosage: 1 DF (320 MG VALS AND 10 MG AMLO), QD
     Route: 048
  2. METFORMIN [Concomitant]
  3. LIPITOR [Concomitant]

REACTIONS (2)
  - Diabetes mellitus [Unknown]
  - Blood cholesterol increased [Unknown]
